FAERS Safety Report 24084587 (Version 1)
Quarter: 2024Q3

REPORT INFORMATION
  Report Type: Spontaneous
  Country: FR (occurrence: FR)
  Receive Date: 20240712
  Receipt Date: 20240712
  Transmission Date: 20241016
  Serious: Yes (Hospitalization)
  Sender: PIERRE FABRE MEDICAMENT
  Company Number: None

PATIENT
  Age: 52 Year
  Sex: Male
  Weight: 97 kg

DRUGS (51)
  1. PROPRANOLOL [Suspect]
     Active Substance: PROPRANOLOL HYDROCHLORIDE
     Indication: Product used for unknown indication
     Dosage: 40 MG, PER DAY
     Route: 048
     Dates: start: 20210626, end: 20211230
  2. CYAMEMAZINE [Suspect]
     Active Substance: CYAMEMAZINE
     Indication: Depression
     Dosage: 25 MG, TID (3/DAY) (EVERY 8 HOURS)
     Route: 048
     Dates: start: 20211124, end: 20211229
  3. OSILODROSTAT PHOSPHATE [Suspect]
     Active Substance: OSILODROSTAT PHOSPHATE
     Indication: Cushing^s syndrome
     Dosage: 20 MG, UNK
     Route: 048
     Dates: start: 20211123, end: 20211220
  4. OSILODROSTAT PHOSPHATE [Suspect]
     Active Substance: OSILODROSTAT PHOSPHATE
     Dosage: 50 MG, UNK
     Route: 048
     Dates: start: 20211220, end: 20211230
  5. OSILODROSTAT PHOSPHATE [Suspect]
     Active Substance: OSILODROSTAT PHOSPHATE
     Dosage: 20 MG, BID (2/DAY)
     Route: 048
     Dates: start: 20211231, end: 20211231
  6. BACTRIM [Suspect]
     Active Substance: SULFAMETHOXAZOLE\TRIMETHOPRIM
     Indication: Antifungal prophylaxis
     Dosage: 400 MG, PER DAY
     Route: 048
     Dates: start: 20211123, end: 20211220
  7. FOLIC ACID [Concomitant]
     Active Substance: FOLIC ACID
     Indication: Vitamin supplementation
     Dosage: 5 MG, PER DAY
     Route: 048
     Dates: start: 20211222, end: 20211228
  8. FUNGIZONE [Concomitant]
     Active Substance: AMPHOTERICIN B
     Indication: Oral candidiasis
     Dosage: 1 DF, PER DAY
     Route: 048
     Dates: start: 20211121, end: 20211211
  9. KETOCONAZOLE [Concomitant]
     Active Substance: KETOCONAZOLE
     Indication: Hyperaldosteronism
     Dosage: 200 MG, TID (3/DAY) (EVERY 8HOURS)
     Route: 048
     Dates: start: 20211231, end: 20220111
  10. KETOCONAZOLE [Concomitant]
     Active Substance: KETOCONAZOLE
     Dosage: 400 MG, TID (3/DAY)(EVERY 8 HOUR)
     Route: 048
     Dates: start: 20211212
  11. PIPERACILLIN SODIUM [Concomitant]
     Active Substance: PIPERACILLIN SODIUM
     Indication: Febrile neutropenia
     Dosage: 1 DF, TID (3/DAY) (EVERY 8 HOUR)
     Route: 041
     Dates: start: 20211223, end: 20211228
  12. HYDROCORTISONE [Concomitant]
     Active Substance: HYDROCORTISONE\HYDROCORTISONE ACETATE
     Indication: Hyperaldosteronism
     Dosage: 60 MG, PER DAY
     Route: 048
     Dates: start: 20211130, end: 20211217
  13. HYDROCORTISONE [Concomitant]
     Active Substance: HYDROCORTISONE\HYDROCORTISONE ACETATE
     Dosage: 40 MG, PER DAY
     Route: 048
     Dates: start: 20211217, end: 20211220
  14. HYDROCORTISONE [Concomitant]
     Active Substance: HYDROCORTISONE\HYDROCORTISONE ACETATE
     Dosage: 80 MG, PER DAY
     Route: 048
     Dates: start: 20211221, end: 20211221
  15. HYDROCORTISONE [Concomitant]
     Active Substance: HYDROCORTISONE\HYDROCORTISONE ACETATE
     Dosage: 60 MG, PER DAY
     Route: 048
     Dates: start: 20211222, end: 20211223
  16. HYDROCORTISONE [Concomitant]
     Active Substance: HYDROCORTISONE\HYDROCORTISONE ACETATE
     Dosage: 140 MG, PER DAY
     Route: 048
     Dates: start: 20211224, end: 20211224
  17. HYDROCORTISONE [Concomitant]
     Active Substance: HYDROCORTISONE\HYDROCORTISONE ACETATE
     Dosage: 50 MG, PER DAY
     Route: 048
     Dates: start: 20211225, end: 20211229
  18. HYDROCORTISONE [Concomitant]
     Active Substance: HYDROCORTISONE\HYDROCORTISONE ACETATE
     Dosage: 60 MG, PER DAY
     Route: 048
     Dates: start: 20211230, end: 20211231
  19. HYDROCORTISONE [Concomitant]
     Active Substance: HYDROCORTISONE\HYDROCORTISONE ACETATE
     Dosage: 90 MG, PER DAY
     Route: 048
     Dates: start: 20220101, end: 20220103
  20. HYDROCORTISONE [Concomitant]
     Active Substance: HYDROCORTISONE\HYDROCORTISONE ACETATE
     Dosage: 60 MG, PER DAY
     Route: 048
     Dates: start: 20220103, end: 20220105
  21. HYDROCORTISONE [Concomitant]
     Active Substance: HYDROCORTISONE\HYDROCORTISONE ACETATE
     Dosage: 200 MG, PER DAY
     Route: 048
     Dates: start: 20220106, end: 20220106
  22. HYDROCORTISONE [Concomitant]
     Active Substance: HYDROCORTISONE\HYDROCORTISONE ACETATE
     Dosage: 60 MG, PER DAY
     Route: 048
     Dates: start: 20220106, end: 20220117
  23. HYDROCORTISONE [Concomitant]
     Active Substance: HYDROCORTISONE\HYDROCORTISONE ACETATE
     Dosage: 20 MG, PER DAY
     Route: 048
     Dates: start: 20220117
  24. ALDACTONE [Concomitant]
     Active Substance: SPIRONOLACTONE
     Indication: Hyperaldosteronism
     Dosage: 150 MG, BID (2/DAY)
     Route: 048
     Dates: start: 20211208, end: 20211217
  25. ALDACTONE [Concomitant]
     Active Substance: SPIRONOLACTONE
     Dosage: 75 MG, BID (2/DAY)
     Route: 048
     Dates: start: 20211218, end: 20211223
  26. ALDACTONE [Concomitant]
     Active Substance: SPIRONOLACTONE
     Dosage: 75 MG, PER DAY
     Route: 048
     Dates: start: 20220101
  27. KLEAN-PREP [Concomitant]
     Active Substance: ELECTROLYTES NOS\POLYETHYLENE GLYCOL 3350
     Indication: Colonic lavage
     Dosage: 1 DF, BID (2/DAY) (EVERY 12 HOURS)
     Route: 048
     Dates: start: 20211223, end: 20211223
  28. KLEAN-PREP [Concomitant]
     Active Substance: ELECTROLYTES NOS\POLYETHYLENE GLYCOL 3350
     Dosage: 2000 ML, BID (2/DAY) (EVERY 12HOURS)
     Route: 048
     Dates: start: 20211227, end: 20211228
  29. KLEAN-PREP [Concomitant]
     Active Substance: ELECTROLYTES NOS\POLYETHYLENE GLYCOL 3350
     Dosage: 2000 ML, BID (2/DAY)(EVERY 12 HOURS)
     Route: 048
     Dates: start: 20220105, end: 20220105
  30. CANRENOATE POTASSIUM\TROMETHAMINE [Concomitant]
     Active Substance: CANRENOATE POTASSIUM\TROMETHAMINE
     Indication: Hyperaldosteronism
     Dosage: 100 MG, TID (3/DAY)(EVERY 8 HOURS)
     Route: 048
     Dates: start: 20211122, end: 20211130
  31. CANRENOATE POTASSIUM\TROMETHAMINE [Concomitant]
     Active Substance: CANRENOATE POTASSIUM\TROMETHAMINE
     Dosage: 100 MG, TID (3/DAY) (EVERY 8 HOURS)
     Route: 048
     Dates: start: 20211201, end: 20211208
  32. TRANXENE [Concomitant]
     Active Substance: CLORAZEPATE DIPOTASSIUM
     Indication: Depression
     Dosage: 20 MG, PER DAY
     Route: 048
     Dates: start: 20211212, end: 20211221
  33. POTASSIUM CHLORIDE [Concomitant]
     Active Substance: POTASSIUM CHLORIDE
     Indication: Hypokalaemia
     Dosage: 1800 MG, QID (4/DAY) (EVERY 6 HOURS)
     Route: 048
     Dates: start: 20211120, end: 20211125
  34. POTASSIUM CHLORIDE [Concomitant]
     Active Substance: POTASSIUM CHLORIDE
     Dosage: 2400 MG, QID (4/DAY) (EVERY 6 HOURS)
     Route: 048
     Dates: start: 20211126, end: 20211130
  35. POTASSIUM CHLORIDE [Concomitant]
     Active Substance: POTASSIUM CHLORIDE
     Dosage: 1800 MG, QID (4/DAY) (EVERY 6 HOURS)
     Route: 048
     Dates: start: 20211201, end: 20211205
  36. POTASSIUM CHLORIDE [Concomitant]
     Active Substance: POTASSIUM CHLORIDE
     Dosage: 1800 MG, TID (3/DAY) (EVERY 8 HOURS)
     Route: 048
     Dates: start: 20211206, end: 20211212
  37. POTASSIUM CHLORIDE [Concomitant]
     Active Substance: POTASSIUM CHLORIDE
     Dosage: 1200 MG, TID (3/DAY) (EVERY 8 HOURS)
     Route: 048
     Dates: start: 20211213, end: 20211214
  38. POTASSIUM CHLORIDE [Concomitant]
     Active Substance: POTASSIUM CHLORIDE
     Dosage: 600 MG, TID (3/DAY) (EVERY 8 HOURS)
     Route: 048
     Dates: start: 20211215, end: 20211215
  39. POTASSIUM CHLORIDE [Concomitant]
     Active Substance: POTASSIUM CHLORIDE
     Dosage: 1200 MG, TID (3/DAY) (EVERY 8 HOURS)
     Route: 048
     Dates: start: 20211223, end: 20211225
  40. POTASSIUM CHLORIDE [Concomitant]
     Active Substance: POTASSIUM CHLORIDE
     Dosage: 600 MG, TID (3/DAY) (EVERY 8 HOURS)
     Route: 048
     Dates: start: 20211226, end: 20220111
  41. DOLIPRANE [Concomitant]
     Active Substance: ACETAMINOPHEN
     Indication: Pyrexia
     Dosage: 1 G, QID (4/DAY) (EVERY 6 HOURS)
     Route: 042
     Dates: start: 20211221, end: 20211231
  42. DOLIPRANE [Concomitant]
     Active Substance: ACETAMINOPHEN
     Dosage: 1 G, TID (3/DAY) (IF NECESSARY)
     Route: 048
     Dates: start: 20220101
  43. LOVENOX [Concomitant]
     Active Substance: ENOXAPARIN SODIUM
     Indication: Product used for unknown indication
     Dosage: 4000 IU, PER DAY
     Route: 058
     Dates: start: 20211120, end: 20220107
  44. DIAZEPAM [Concomitant]
     Active Substance: DIAZEPAM
     Indication: Depression
     Dosage: 30 MG, PER DAY
     Route: 048
     Dates: start: 20211124, end: 20211129
  45. DIAZEPAM [Concomitant]
     Active Substance: DIAZEPAM
     Dosage: 10 MG, PER DAY
     Route: 048
     Dates: start: 20211130, end: 20211219
  46. DIAZEPAM [Concomitant]
     Active Substance: DIAZEPAM
     Dosage: 15 MG, PER DAY
     Route: 048
     Dates: start: 20211220, end: 20211228
  47. DIAZEPAM [Concomitant]
     Active Substance: DIAZEPAM
     Dosage: 25 MG, PER DAY
     Route: 048
     Dates: start: 20211229
  48. CALCIUM PHOSPHATE, DIBASIC, ANHYDROUS\MAGNESIUM GLYCEROPHOSPHATE\PHOSP [Concomitant]
     Active Substance: CALCIUM PHOSPHATE, DIBASIC, ANHYDROUS\MAGNESIUM GLYCEROPHOSPHATE\PHOSPHORIC ACID\SODIUM PHOSPHATE, D
     Indication: Product used for unknown indication
     Dosage: 50 DROPS, TID (3/DAY)
     Route: 048
     Dates: start: 20211120, end: 20211215
  49. CALCIUM PHOSPHATE, DIBASIC, ANHYDROUS\MAGNESIUM GLYCEROPHOSPHATE\PHOSP [Concomitant]
     Active Substance: CALCIUM PHOSPHATE, DIBASIC, ANHYDROUS\MAGNESIUM GLYCEROPHOSPHATE\PHOSPHORIC ACID\SODIUM PHOSPHATE, D
     Dosage: 75 DROPS, TID (3/DAY)
     Route: 048
     Dates: start: 20211216, end: 20220114
  50. PANTOPRAZOLE SODIUM [Concomitant]
     Active Substance: PANTOPRAZOLE SODIUM
     Indication: Oesophagitis
     Dosage: 80 MG, PER DAY
     Route: 048
     Dates: start: 20211224, end: 20211228
  51. PANTOPRAZOLE SODIUM [Concomitant]
     Active Substance: PANTOPRAZOLE SODIUM
     Dosage: 80 MG, PER DAY
     Route: 048
     Dates: start: 20220105

REACTIONS (3)
  - Agranulocytosis [Recovered/Resolved]
  - Product use issue [Unknown]
  - Off label use [Unknown]

NARRATIVE: CASE EVENT DATE: 20211220
